FAERS Safety Report 6843357-4 (Version None)
Quarter: 2010Q2

REPORT INFORMATION
  Report Type: 
  Country: None (occurrence: None)
  Receive Date: 20100629
  Receipt Date: 20100513
  Transmission Date: 20101027
  Serious: No
  Sender: FDA-Public Use
  Company Number: US-WYE-H15283410

PATIENT
  Age: 32 Year
  Sex: Male
  Weight: 86.26 kg

DRUGS (3)
  1. PRISTIQ [Suspect]
     Indication: DEPRESSION
     Dosage: 50 MG 1X PER 1 DAY
     Dates: start: 20100101
  2. DEPAKOTE [Concomitant]
  3. TRAZODONE HCL [Concomitant]

REACTIONS (1)
  - INSOMNIA [None]
